FAERS Safety Report 8157729-1 (Version None)
Quarter: 2012Q1

REPORT INFORMATION
  Report Type: 
  Country: None (occurrence: None)
  Receive Date: 20120222
  Receipt Date: 20120217
  Transmission Date: 20120608
  Serious: No
  Sender: FDA-Public Use
  Company Number: US-B.I. PHARMACEUTICALS,INC./RIDGEFIELD-2012-BP-03274BP

PATIENT
  Sex: Male

DRUGS (2)
  1. METFORMIN HCL [Concomitant]
  2. TRADJENTA [Suspect]
     Indication: DIABETES MELLITUS
     Dosage: 5 MG

REACTIONS (1)
  - BLOOD GLUCOSE INCREASED [None]
